FAERS Safety Report 6948045-1 (Version None)
Quarter: 2010Q3

REPORT INFORMATION
  Report Type: 
  Country: None (occurrence: None)
  Receive Date: 20100828
  Receipt Date: 20091008
  Transmission Date: 20110219
  Serious: No
  Sender: FDA-Public Use
  Company Number: US-ABBOTT-09P-163-0602866-00

PATIENT
  Sex: Male
  Weight: 154.36 kg

DRUGS (10)
  1. NIASPAN [Suspect]
     Indication: BLOOD CHOLESTEROL INCREASED
     Route: 048
     Dates: start: 20050101
  2. NIASPAN [Suspect]
     Indication: BLOOD TRIGLYCERIDES INCREASED
  3. MONOPRIL [Suspect]
     Indication: DIURETIC THERAPY
  4. MONOPRIL [Suspect]
     Dosage: 10/12MG
  5. TOPROL-XL [Suspect]
     Indication: HYPERTENSION
  6. TOPROL-XL [Suspect]
     Dosage: 1/2 TABLET
  7. VYTORIN [Suspect]
     Indication: BLOOD CHOLESTEROL INCREASED
  8. VYTORIN [Suspect]
     Indication: BLOOD TRIGLYCERIDES INCREASED
  9. ASPIRIN [Concomitant]
     Indication: PRODUCT USED FOR UNKNOWN INDICATION
     Route: 048
  10. CRESTOR [Concomitant]
     Indication: BLOOD CHOLESTEROL INCREASED
     Route: 048

REACTIONS (5)
  - DYSPNOEA [None]
  - FATIGUE [None]
  - SKIN DISCOLOURATION [None]
  - TOOTH ABSCESS [None]
  - VIITH NERVE PARALYSIS [None]
